FAERS Safety Report 13054950 (Version 1)
Quarter: 2016Q4

REPORT INFORMATION
  Report Type: Other
  Country: None (occurrence: US)
  Receive Date: 20161222
  Receipt Date: 20161222
  Transmission Date: 20170207
  Serious: Yes (Other)
  Sender: FDA-Public Use
  Company Number: US-MEDAC PHARMA, INC.-1061180

PATIENT
  Age: 79 Year
  Sex: Male

DRUGS (1)
  1. METHOTREXATE. [Suspect]
     Active Substance: METHOTREXATE
     Indication: RHEUMATOID ARTHRITIS

REACTIONS (2)
  - Pneumonitis [Not Recovered/Not Resolved]
  - Respiratory failure [Not Recovered/Not Resolved]
